FAERS Safety Report 8517824-1 (Version None)
Quarter: 2012Q3

REPORT INFORMATION
  Report Type: 
  Country: None (occurrence: None)
  Receive Date: 20120718
  Receipt Date: 20120705
  Transmission Date: 20120928
  Serious: Yes (Death, Hospitalization)
  Sender: FDA-Public Use
  Company Number: PH-BAXTER-2012BAX010834

PATIENT
  Sex: Male

DRUGS (7)
  1. AMLODIPINE [Concomitant]
     Route: 065
  2. DIANEAL PD-2 W/ DEXTROSE 1.5% [Suspect]
     Route: 033
     Dates: start: 20120104
  3. CLONIDINE [Concomitant]
     Route: 065
  4. EXTRANEAL [Suspect]
     Route: 033
     Dates: start: 20120104
  5. FERROUS SULFATE TAB [Concomitant]
     Route: 065
  6. SODIUM BICARBONATE [Concomitant]
     Route: 065
  7. RENVELA [Concomitant]
     Route: 065

REACTIONS (3)
  - HYPERTENSIVE NEPHROPATHY [None]
  - CARDIAC ARREST [None]
  - RENAL FAILURE CHRONIC [None]
